FAERS Safety Report 5683264-6 (Version None)
Quarter: 2008Q1

REPORT INFORMATION
  Report Type: 
  Country: None (occurrence: None)
  Receive Date: 20080326
  Receipt Date: 20080313
  Transmission Date: 20080703
  Serious: Yes (Other)
  Sender: FDA-Public Use
  Company Number: 2008S1004278

PATIENT
  Age: 70 Year
  Sex: Female

DRUGS (6)
  1. VERAPAMIL HCL [Suspect]
     Indication: HYPERTENSION
     Dosage: 180 MG; DAILY; ORAL, 180 MG; TWICE A DAY; ORAL
     Route: 048
     Dates: end: 20080302
  2. VERAPAMIL HCL [Suspect]
     Indication: HYPERTENSION
     Dosage: 180 MG; DAILY; ORAL, 180 MG; TWICE A DAY; ORAL
     Route: 048
     Dates: start: 20080303
  3. MIACALCIN [Concomitant]
  4. PREVACID [Concomitant]
  5. VYTORIN [Concomitant]
  6. WARFARIN SODIUM [Concomitant]

REACTIONS (5)
  - BLOOD PRESSURE INCREASED [None]
  - DIZZINESS [None]
  - DRUG INEFFECTIVE [None]
  - HEADACHE [None]
  - PHARMACEUTICAL PRODUCT COMPLAINT [None]
